FAERS Safety Report 20044830 (Version 1)
Quarter: 2021Q4

REPORT INFORMATION
  Report Type: Spontaneous
  Country: NL (occurrence: NL)
  Receive Date: 20211108
  Receipt Date: 20211108
  Transmission Date: 20220303
  Serious: Yes (Other)
  Sender: FDA-Public Use
  Company Number: None

PATIENT
  Sex: Male
  Weight: 82 kg

DRUGS (1)
  1. TAMSULOSIN [Suspect]
     Active Substance: TAMSULOSIN
     Indication: Dysuria
     Dosage: MODIFIED RELEASE CAPSULE 0,4 MG (MILLIGRAM)
     Dates: start: 20211001, end: 20211011

REACTIONS (1)
  - Erectile dysfunction [Recovered/Resolved]
